FAERS Safety Report 6072205-8 (Version None)
Quarter: 2009Q1

REPORT INFORMATION
  Report Type: 
  Country: None (occurrence: None)
  Receive Date: 20090206
  Receipt Date: 20090206
  Transmission Date: 20090719
  Serious: Yes (Other)
  Sender: FDA-Public Use
  Company Number: None

PATIENT
  Sex: Female
  Weight: 70.3075 kg

DRUGS (1)
  1. PROZAC [Suspect]

REACTIONS (6)
  - CHILLS [None]
  - FEELING ABNORMAL [None]
  - LOSS OF LIBIDO [None]
  - MUSCLE TWITCHING [None]
  - PARTNER STRESS [None]
  - SELF ESTEEM DECREASED [None]
